FAERS Safety Report 4311392-6 (Version None)
Quarter: 2004Q1

REPORT INFORMATION
  Report Type: 
  Country: None (occurrence: None)
  Receive Date: 20040304
  Receipt Date: 20040227
  Transmission Date: 20041129
  Serious: Yes (Disabling, Other)
  Sender: FDA-Public Use
  Company Number: CH-BRISTOL-MYERS SQUIBB COMPANY-12518536

PATIENT
  Age: 3 Decade
  Sex: Male

DRUGS (6)
  1. STOCRIN [Suspect]
     Indication: HIV INFECTION
     Route: 048
     Dates: start: 20021001, end: 20030101
  2. ZERIT [Suspect]
     Indication: HIV INFECTION
     Route: 048
     Dates: start: 19960801, end: 20010301
  3. VIDEX [Suspect]
     Indication: HIV INFECTION
     Route: 048
     Dates: start: 20021001, end: 20030101
  4. LAMIVUDINE [Suspect]
     Indication: HIV INFECTION
     Route: 048
     Dates: start: 19960801, end: 20010301
  5. ZIAGEN [Suspect]
     Indication: HIV INFECTION
     Route: 048
     Dates: start: 20021001, end: 20030101
  6. CRIXIVAN [Suspect]
     Indication: HIV INFECTION
     Dates: start: 19960801, end: 19961101

REACTIONS (2)
  - BLEEDING TIME PROLONGED [None]
  - MUSCLE HAEMORRHAGE [None]
